FAERS Safety Report 7456778-6 (Version None)
Quarter: 2011Q2

REPORT INFORMATION
  Report Type: 
  Country: None (occurrence: None)
  Receive Date: 20110504
  Receipt Date: 20110426
  Transmission Date: 20111010
  Serious: Yes (Hospitalization)
  Sender: FDA-Public Use
  Company Number: US-BIOGENIDEC-2010BI038775

PATIENT
  Age: 50 Year
  Sex: Male
  Weight: 106 kg

DRUGS (1)
  1. TYSABRI [Suspect]
     Indication: MULTIPLE SCLEROSIS
     Route: 042
     Dates: start: 20090814

REACTIONS (10)
  - PAIN [None]
  - MULTIPLE SCLEROSIS RELAPSE [None]
  - DEPRESSED MOOD [None]
  - OPEN WOUND [None]
  - URTICARIA [None]
  - STAPHYLOCOCCAL INFECTION [None]
  - RASH PRURITIC [None]
  - DEEP VEIN THROMBOSIS [None]
  - CHEST DISCOMFORT [None]
  - RASH PAPULAR [None]
